FAERS Safety Report 7823065-3 (Version None)
Quarter: 2011Q4

REPORT INFORMATION
  Report Type: 
  Country: None (occurrence: None)
  Receive Date: 20111018
  Receipt Date: 20110701
  Transmission Date: 20120403
  Serious: No
  Sender: FDA-Public Use
  Company Number: US-ASTRAZENECA-2011SE39630

PATIENT
  Sex: Male

DRUGS (1)
  1. SYMBICORT [Suspect]
     Indication: CHRONIC OBSTRUCTIVE PULMONARY DISEASE
     Dosage: DOSE FREQUENCY-TWO TIMES A DAY, TOTAL DAILY DOSE-160 MCG
     Route: 055

REACTIONS (2)
  - TREATMENT NONCOMPLIANCE [None]
  - CHRONIC OBSTRUCTIVE PULMONARY DISEASE [None]
